FAERS Safety Report 7715182-3 (Version None)
Quarter: 2011Q3

REPORT INFORMATION
  Report Type: 
  Country: None (occurrence: None)
  Receive Date: 20110810
  Receipt Date: 20110518
  Transmission Date: 20111222
  Serious: No
  Sender: FDA-Public Use
  Company Number: 1000021002

PATIENT
  Age: 48 Year
  Sex: Female

DRUGS (5)
  1. SAVELLA [Suspect]
     Indication: FIBROMYALGIA
     Dosage: SEE IMAGE ORAL
     Route: 048
     Dates: start: 20100901, end: 20110501
  2. SAVELLA [Suspect]
     Indication: FIBROMYALGIA
     Dosage: SEE IMAGE ORAL
     Route: 048
     Dates: start: 20100901, end: 20100901
  3. SAVELLA [Suspect]
     Indication: FIBROMYALGIA
     Dosage: SEE IMAGE ORAL
     Route: 048
     Dates: start: 20100901, end: 20100901
  4. SAVELLA [Suspect]
     Indication: FIBROMYALGIA
     Dosage: SEE IMAGE ORAL
     Route: 048
     Dates: start: 20100901, end: 20100901
  5. ALPRAZOLAM [Concomitant]

REACTIONS (9)
  - INSOMNIA [None]
  - APATHY [None]
  - DEPRESSION [None]
  - EMOTIONAL DISORDER [None]
  - DIZZINESS [None]
  - ANXIETY [None]
  - HEADACHE [None]
  - DRUG INEFFECTIVE [None]
  - AGITATION [None]
